FAERS Safety Report 20761218 (Version 1)
Quarter: 2022Q2

REPORT INFORMATION
  Report Type: Spontaneous
  Country: US (occurrence: US)
  Receive Date: 20220428
  Receipt Date: 20220428
  Transmission Date: 20220721
  Serious: Yes (Other)
  Sender: FDA-Public Use
  Company Number: US-LUPIN PHARMACEUTICALS INC.-2022-06170

PATIENT
  Age: 68 Year
  Sex: Female

DRUGS (7)
  1. CEFTRIAXONE [Suspect]
     Active Substance: CEFTRIAXONE
     Indication: Nocardiosis
     Dosage: UNK
     Route: 065
  2. LINEZOLID [Suspect]
     Active Substance: LINEZOLID
     Indication: Nocardiosis
     Dosage: UNK
     Route: 065
  3. MINOCYCLINE [Suspect]
     Active Substance: MINOCYCLINE HYDROCHLORIDE
     Indication: Nocardiosis
     Dosage: UNK
     Route: 065
  4. SULFAMETHOXAZOLE AND TRIMETHOPRIM [Suspect]
     Active Substance: SULFAMETHOXAZOLE\TRIMETHOPRIM
     Indication: Nocardiosis
     Dosage: 2 DOSAGE FORM, BID (DS TABLET)
     Route: 065
  5. SULFAMETHOXAZOLE AND TRIMETHOPRIM [Suspect]
     Active Substance: SULFAMETHOXAZOLE\TRIMETHOPRIM
     Dosage: 1 DOSAGE FORM, BID (DS TABLET)
     Route: 065
  6. AMIKACIN [Suspect]
     Active Substance: AMIKACIN
     Indication: Nocardiosis
     Dosage: UNK
  7. AMIKACIN [Suspect]
     Active Substance: AMIKACIN
     Dosage: UNK

REACTIONS (5)
  - Blindness [Recovered/Resolved]
  - Hyperkalaemia [Unknown]
  - Leukopenia [Unknown]
  - Drug ineffective for unapproved indication [Unknown]
  - Off label use [Unknown]
